FAERS Safety Report 12628801 (Version 1)
Quarter: 2016Q3

REPORT INFORMATION
  Report Type: Other
  Country: IT (occurrence: IT)
  Receive Date: 20160808
  Receipt Date: 20160808
  Transmission Date: 20161109
  Serious: Yes (Other)
  Sender: FDA-Public Use
  Company Number: IT-NOVEL LABORATORIES, INC-2016-03422

PATIENT
  Age: 11 Year
  Sex: Male

DRUGS (6)
  1. METHYLPREDNISOLONE. [Concomitant]
     Active Substance: METHYLPREDNISOLONE
     Indication: STEROID THERAPY
     Route: 065
  2. VORICONAZOLE. [Suspect]
     Active Substance: VORICONAZOLE
     Indication: SCEDOSPORIUM INFECTION
     Dosage: 8 MG/KG BODY WEIGHT PER DAY IN 2 DOSES
     Route: 042
  3. TOBRAMYCIN. [Concomitant]
     Active Substance: TOBRAMYCIN
     Indication: PSEUDOMONAS INFECTION
  4. CIPROFLOXACIN. [Concomitant]
     Active Substance: CIPROFLOXACIN
     Indication: PSEUDOMONAS INFECTION
     Route: 048
  5. CEFTAZIDIME. [Concomitant]
     Active Substance: CEFTAZIDIME
     Indication: ANTIBIOTIC THERAPY
     Route: 042
  6. TOBRAMYCIN. [Concomitant]
     Active Substance: TOBRAMYCIN
     Indication: ANTIBIOTIC THERAPY
     Route: 042

REACTIONS (3)
  - Headache [Unknown]
  - Drug resistance [Unknown]
  - Dizziness [Unknown]
